FAERS Safety Report 18690331 (Version 3)
Quarter: 2021Q1

REPORT INFORMATION
  Report Type: Spontaneous
  Country: US (occurrence: US)
  Receive Date: 20210101
  Receipt Date: 20210325
  Transmission Date: 20210419
  Serious: Yes (Other)
  Sender: FDA-Public Use
  Company Number: US-SA-2020SA371615

PATIENT
  Age: 44 Year
  Sex: Female
  Weight: 72.57 kg

DRUGS (24)
  1. HERCEPTIN [Concomitant]
     Active Substance: TRASTUZUMAB
     Indication: BREAST CANCER FEMALE
     Dosage: 536 MG
     Dates: start: 20140227
  2. HERCEPTIN [Concomitant]
     Active Substance: TRASTUZUMAB
     Dosage: 400 MG
     Dates: start: 20140320
  3. HERCEPTIN [Concomitant]
     Active Substance: TRASTUZUMAB
     Dosage: 400 MG
     Dates: start: 20140501
  4. ADVAIR HFA [Concomitant]
     Active Substance: FLUTICASONE PROPIONATE\SALMETEROL XINAFOATE
     Dosage: UNK
     Dates: start: 20100101
  5. PROVENTIL [Concomitant]
     Active Substance: ALBUTEROL
     Dosage: UNK
     Dates: start: 20100101
  6. HYDROCODONE/ACETAMINOPHEN [Concomitant]
     Active Substance: ACETAMINOPHEN\HYDROCODONE
     Dosage: UNK
     Route: 065
     Dates: start: 20100101
  7. IBUPROFEN. [Concomitant]
     Active Substance: IBUPROFEN
     Dosage: UNK
     Dates: start: 20100101
  8. PROMETHAZINE [Concomitant]
     Active Substance: PROMETHAZINE HYDROCHLORIDE
     Dosage: UNK
     Dates: start: 20100101
  9. TAXOTERE [Suspect]
     Active Substance: DOCETAXEL
     Dosage: 180 MG, Q3W
     Route: 065
     Dates: start: 20140501, end: 20140501
  10. HERCEPTIN [Concomitant]
     Active Substance: TRASTUZUMAB
     Dosage: 400 MG
     Dates: start: 20140410
  11. ONDANSETRON [Concomitant]
     Active Substance: ONDANSETRON
     Dosage: UNK
     Dates: start: 20100101
  12. CARVEDILOL. [Concomitant]
     Active Substance: CARVEDILOL
     Dosage: UNK
     Dates: start: 20100101
  13. TAMOXIFEN [Concomitant]
     Active Substance: TAMOXIFEN
     Dosage: UNK
     Dates: start: 20100101
  14. DEXAMETHASONE. [Concomitant]
     Active Substance: DEXAMETHASONE
     Dosage: UNK
     Dates: start: 20100101
  15. LORAZEPAM. [Concomitant]
     Active Substance: LORAZEPAM
     Dosage: UNK
     Route: 065
     Dates: start: 20140319, end: 20140723
  16. PROCHLORPERAZINE. [Concomitant]
     Active Substance: PROCHLORPERAZINE
     Dosage: UNK
     Route: 065
     Dates: start: 20140319, end: 20140723
  17. TAXOTERE [Suspect]
     Active Substance: DOCETAXEL
     Indication: BREAST CANCER FEMALE
     Dosage: 180 MG, Q3W
     Route: 065
     Dates: start: 20140227, end: 20140227
  18. DIPHENOXYLATE/ATROPINE [Concomitant]
     Active Substance: ATROPINE\DIPHENOXYLATE
     Dosage: UNK
     Route: 065
     Dates: start: 20140319, end: 20140723
  19. HYDROCODONE/ACETAMINOPHEN [Concomitant]
     Active Substance: ACETAMINOPHEN\HYDROCODONE
     Dosage: UNK
     Route: 065
     Dates: start: 20140319, end: 20140723
  20. ONDANSETRON [Concomitant]
     Active Substance: ONDANSETRON
     Dosage: UNK
     Dates: start: 20140319, end: 20140723
  21. PREDNISONE. [Concomitant]
     Active Substance: PREDNISONE
     Dosage: UNK
     Dates: start: 20100101
  22. NEOSAR [Concomitant]
     Active Substance: CYCLOPHOSPHAMIDE
     Indication: BREAST CANCER FEMALE
     Route: 065
  23. ADRIAMYCIN [Concomitant]
     Active Substance: DOXORUBICIN HYDROCHLORIDE
     Indication: BREAST CANCER FEMALE
     Route: 065
  24. CARVEDILOL. [Concomitant]
     Active Substance: CARVEDILOL
     Dosage: UNK
     Dates: start: 20140319, end: 20140723

REACTIONS (2)
  - Psychological trauma [Unknown]
  - Alopecia [Recovering/Resolving]

NARRATIVE: CASE EVENT DATE: 20140315
